FAERS Safety Report 5902275-6 (Version None)
Quarter: 2008Q3

REPORT INFORMATION
  Report Type: 
  Country: None (occurrence: None)
  Receive Date: 20080929
  Receipt Date: 20080630
  Transmission Date: 20090109
  Serious: No
  Sender: FDA-Public Use
  Company Number: US-BAUSCH-2008BL002195

PATIENT
  Age: 52 Year
  Sex: Female
  Weight: 81 kg

DRUGS (1)
  1. ALAWAY [Suspect]
     Indication: EYE PRURITUS
     Route: 047
     Dates: start: 20080425, end: 20080515

REACTIONS (2)
  - DRUG EFFECT DECREASED [None]
  - LACRIMATION INCREASED [None]
